FAERS Safety Report 13431189 (Version 2)
Quarter: 2017Q2

REPORT INFORMATION
  Report Type: Spontaneous
  Country: JP (occurrence: JP)
  Receive Date: 20170412
  Receipt Date: 20170420
  Transmission Date: 20170830
  Serious: Yes (Hospitalization, Other)
  Sender: FDA-Public Use
  Company Number: JP-SUN PHARMACEUTICAL INDUSTRIES LTD-2017RR-137422

PATIENT
  Age: 52 Year
  Sex: Male

DRUGS (1)
  1. CARBOPLATIN. [Suspect]
     Active Substance: CARBOPLATIN
     Indication: LARYNGEAL CANCER
     Dosage: UNK
     Route: 065
     Dates: start: 20090827

REACTIONS (3)
  - Pharyngeal fistula [Recovered/Resolved]
  - Jugular vein thrombosis [Recovered/Resolved]
  - Abscess neck [Recovered/Resolved]
